FAERS Safety Report 8623659-1 (Version None)
Quarter: 2012Q3

REPORT INFORMATION
  Report Type: 
  Country: None (occurrence: None)
  Receive Date: 20120827
  Receipt Date: 20120821
  Transmission Date: 20120928
  Serious: Yes (Hospitalization, Other)
  Sender: FDA-Public Use
  Company Number: CO-PFIZER INC-2012207206

PATIENT
  Age: 74 Year
  Sex: Female

DRUGS (6)
  1. GEMFIBROZIL [Concomitant]
     Route: 065
  2. ASPIRIN [Concomitant]
     Dosage: UNK
     Route: 065
  3. ISOSORBIDE [Concomitant]
     Indication: HYPERTENSION
     Dosage: UNK
     Route: 065
  4. DILTIAZEM [Concomitant]
     Indication: HYPERTENSION
     Dosage: UNK
     Route: 065
  5. OMEPRAZOLE [Concomitant]
     Route: 065
  6. LYRICA [Suspect]
     Indication: PAIN
     Dosage: 75 MG, UNK
     Route: 065
     Dates: start: 20120202, end: 20120701

REACTIONS (4)
  - FACIAL PAIN [None]
  - VOMITING [None]
  - PULMONARY MASS [None]
  - MALAISE [None]
